FAERS Safety Report 7209197-1 (Version None)
Quarter: 2011Q1

REPORT INFORMATION
  Report Type: 
  Country: None (occurrence: None)
  Receive Date: 20110104
  Receipt Date: 20101214
  Transmission Date: 20110831
  Serious: Yes (Hospitalization)
  Sender: FDA-Public Use
  Company Number: A0700840A

PATIENT
  Age: 59 Year
  Sex: Female
  Weight: 74.1 kg

DRUGS (7)
  1. AVANDIA [Suspect]
     Dosage: 4MG TWICE PER DAY
     Route: 048
     Dates: start: 20050523, end: 20050101
  2. AVANDAMET [Suspect]
     Route: 048
     Dates: start: 20040316, end: 20060708
  3. LISINOPRIL [Concomitant]
     Dates: start: 20010604
  4. ZETIA [Concomitant]
  5. METFORMIN [Concomitant]
  6. LIPITOR [Concomitant]
  7. PREMPRO [Concomitant]

REACTIONS (3)
  - CORONARY ARTERY DISEASE [None]
  - INJURY [None]
  - MYOCARDIAL INFARCTION [None]
